FAERS Safety Report 4751287-7 (Version None)
Quarter: 2005Q3

REPORT INFORMATION
  Report Type: 
  Country: None (occurrence: None)
  Receive Date: 20050822
  Receipt Date: 20050805
  Transmission Date: 20060218
  Serious: Yes (Life-Threatening, Hospitalization)
  Sender: FDA-Public Use
  Company Number: RENA-11467

PATIENT
  Age: 54 Year
  Sex: Male

DRUGS (2)
  1. PHOSBLOCK - 250 MG TABLET [Suspect]
     Indication: HYPERPHOSPHATAEMIA
     Dosage: 2.25 G DAILY PO
     Route: 048
     Dates: start: 20040801, end: 20050711
  2. ACETAMINOPHEN [Concomitant]

REACTIONS (2)
  - INTESTINAL PERFORATION [None]
  - PERITONITIS [None]
